FAERS Safety Report 8292012-5 (Version None)
Quarter: 2012Q2

REPORT INFORMATION
  Report Type: 
  Country: None (occurrence: None)
  Receive Date: 20120417
  Receipt Date: 20120412
  Transmission Date: 20120825
  Serious: No
  Sender: FDA-Public Use
  Company Number: US-B.I. PHARMACEUTICALS,INC./RIDGEFIELD-2012-BP-03241BP

PATIENT
  Sex: Male

DRUGS (6)
  1. PRADAXA [Suspect]
     Indication: ATRIAL FIBRILLATION
     Dosage: 300 MG
     Route: 048
     Dates: start: 20110101, end: 20120321
  2. COREG [Concomitant]
     Indication: CONGESTIVE CARDIOMYOPATHY
  3. DIGOXIN [Concomitant]
     Dosage: 0.125 MG
  4. COREG [Concomitant]
     Indication: CARDIAC DISORDER
     Dosage: 25 MG
  5. LASIX [Concomitant]
     Indication: CONGESTIVE CARDIOMYOPATHY
     Dosage: 10 MG
  6. LISINOPRIL [Concomitant]
     Indication: HYPERTENSION
     Dosage: 40 MG

REACTIONS (3)
  - ERUCTATION [None]
  - GASTROOESOPHAGEAL REFLUX DISEASE [None]
  - ABDOMINAL DISCOMFORT [None]
